FAERS Safety Report 22324531 (Version 1)
Quarter: 2023Q2

REPORT INFORMATION
  Report Type: Other
  Country: None (occurrence: RO)
  Receive Date: 20230516
  Receipt Date: 20230516
  Transmission Date: 20230721
  Serious: Yes (Hospitalization, Other)
  Sender: FDA-Public Use
  Company Number: RO-Renata Limited-2141509

PATIENT
  Age: 63 Year
  Sex: Female

DRUGS (6)
  1. METOPROLOL TARTRATE [Suspect]
     Active Substance: METOPROLOL TARTRATE
     Indication: Product used for unknown indication
     Route: 048
  2. DIGOXIN [Suspect]
     Active Substance: DIGOXIN
     Route: 048
  3. DIAZEPAM [Suspect]
     Active Substance: DIAZEPAM
     Route: 048
  4. ACETAMINOPHEN [Concomitant]
     Active Substance: ACETAMINOPHEN
     Route: 048
  5. TRAMADOL [Concomitant]
     Active Substance: TRAMADOL
     Route: 048
  6. CHLORZOXAZONE [Concomitant]
     Active Substance: CHLORZOXAZONE
     Route: 048

REACTIONS (7)
  - Stress cardiomyopathy [Recovered/Resolved]
  - Haemodynamic instability [Recovered/Resolved]
  - Coma scale abnormal [Recovered/Resolved]
  - Toxicity to various agents [Recovered/Resolved]
  - Sinus bradycardia [Recovered/Resolved]
  - Hypotension [Recovered/Resolved]
  - Intentional overdose [Unknown]
